FAERS Safety Report 7501580-X (Version None)
Quarter: 2011Q2

REPORT INFORMATION
  Report Type: 
  Country: None (occurrence: None)
  Receive Date: 20110524
  Receipt Date: 20110517
  Transmission Date: 20111010
  Serious: Yes (Hospitalization)
  Sender: FDA-Public Use
  Company Number: US-GILEAD-2011-0037103

PATIENT
  Sex: Female

DRUGS (13)
  1. LETAIRIS [Suspect]
     Indication: PULMONARY HYPERTENSION
     Route: 048
     Dates: start: 20101221
  2. LETAIRIS [Suspect]
     Indication: INTERSTITIAL LUNG DISEASE
  3. AVELOX [Concomitant]
  4. SPRINTEC [Concomitant]
  5. REVATIO [Concomitant]
  6. LASIX [Concomitant]
  7. PREVACID [Concomitant]
  8. IMURAN [Concomitant]
  9. LETAIRIS [Suspect]
     Indication: MIXED CONNECTIVE TISSUE DISEASE
  10. AUGMENTIN [Concomitant]
  11. POTASSIUM CHLORIDE [Concomitant]
  12. CELEBREX [Concomitant]
  13. COUMADIN [Concomitant]

REACTIONS (2)
  - RASH [None]
  - DEHYDRATION [None]
